FAERS Safety Report 8186094-9 (Version None)
Quarter: 2012Q1

REPORT INFORMATION
  Report Type: 
  Country: None (occurrence: None)
  Receive Date: 20120306
  Receipt Date: 20120229
  Transmission Date: 20120608
  Serious: No
  Sender: FDA-Public Use
  Company Number: US-BIOGENIDEC-2012BI007606

PATIENT
  Age: 63 Year
  Sex: Female

DRUGS (1)
  1. TYSABRI [Suspect]
     Indication: MULTIPLE SCLEROSIS
     Route: 042
     Dates: start: 20070131

REACTIONS (9)
  - MOBILITY DECREASED [None]
  - FAECAL INCONTINENCE [None]
  - ASTHENIA [None]
  - MULTIPLE SCLEROSIS [None]
  - HEMIPARESIS [None]
  - FATIGUE [None]
  - CONFUSIONAL STATE [None]
  - FALL [None]
  - HYPERTENSION [None]
